FAERS Safety Report 4626529-9 (Version None)
Quarter: 2005Q2

REPORT INFORMATION
  Report Type: 
  Country: None (occurrence: None)
  Receive Date: 20050404
  Receipt Date: 20050328
  Transmission Date: 20051028
  Serious: Yes (Hospitalization, Other)
  Sender: FDA-Public Use
  Company Number: US-MERCK-0503USA04924

PATIENT
  Age: 78 Year
  Sex: Male

DRUGS (6)
  1. VYTORIN [Suspect]
     Indication: BLOOD CHOLESTEROL INCREASED
     Route: 048
     Dates: start: 20041216, end: 20050301
  2. GLUCOVANCE [Concomitant]
     Route: 065
  3. PREVACID [Concomitant]
     Route: 065
  4. COREG [Concomitant]
     Route: 065
  5. PRINIVIL [Concomitant]
     Route: 048
  6. FLOMAX [Concomitant]
     Route: 065

REACTIONS (2)
  - FALL [None]
  - RHABDOMYOLYSIS [None]
